FAERS Safety Report 12352371 (Version 1)
Quarter: 2016Q2

REPORT INFORMATION
  Report Type: Spontaneous
  Country: IT (occurrence: IT)
  Receive Date: 20160510
  Receipt Date: 20160510
  Transmission Date: 20160815
  Serious: Yes (Other)
  Sender: FDA-Public Use
  Company Number: IT-JNJFOC-20160507208

PATIENT
  Age: 30 Year
  Sex: Female

DRUGS (2)
  1. INVEGA [Suspect]
     Active Substance: PALIPERIDONE
     Indication: PRODUCT USED FOR UNKNOWN INDICATION
     Route: 048
     Dates: start: 20160505, end: 20160505
  2. CARBOLITHIUM [Suspect]
     Active Substance: LITHIUM CARBONATE
     Indication: PRODUCT USED FOR UNKNOWN INDICATION
     Route: 048
     Dates: start: 20160505, end: 20160505

REACTIONS (6)
  - Sluggishness [Unknown]
  - Intentional product misuse [Unknown]
  - Vomiting [Unknown]
  - Tachycardia [Unknown]
  - Diarrhoea [Unknown]
  - Self injurious behaviour [Unknown]

NARRATIVE: CASE EVENT DATE: 20160505
